FAERS Safety Report 8693535 (Version 6)
Quarter: 2012Q4

REPORT INFORMATION
  Report Type: 
  Country: CA (occurrence: CA)
  Receive Date: 20120730
  Receipt Date: 20121225
  Transmission Date: 20130627
  Serious: Yes (Hospitalization)
  Sender: FDA-Public Use
  Company Number: CA-BRISTOL-MYERS SQUIBB COMPANY-16794232

PATIENT
  Age: 58 Year
  Sex: Female

DRUGS (6)
  1. ERBITUX [Suspect]
     Indication: COLORECTAL CANCER
     Dosage: inf: 4Apr12 
intr
resume 11Jul12, inf25Jul12
Dge:399 mg,640mg-ExpJun15
last inf:12Dec12(400mg)
     Route: 042
     Dates: start: 20120125
  2. IMODIUM [Concomitant]
  3. SOLU-MEDROL [Concomitant]
     Indication: PREMEDICATION
  4. 5-FLUOROURACIL [Concomitant]
  5. HYDROCORTISONE [Concomitant]
     Indication: PREMEDICATION
     Route: 042
  6. BENADRYL [Concomitant]
     Indication: PREMEDICATION
     Route: 042

REACTIONS (7)
  - Neoplasm [Unknown]
  - Glossitis [Recovered/Resolved]
  - Diarrhoea [Not Recovered/Not Resolved]
  - Constipation [Not Recovered/Not Resolved]
  - Oral pain [Not Recovered/Not Resolved]
  - Fatigue [Not Recovered/Not Resolved]
  - Blood pressure increased [Not Recovered/Not Resolved]
